FAERS Safety Report 8197284-3 (Version None)
Quarter: 2012Q1

REPORT INFORMATION
  Report Type: 
  Country: None (occurrence: None)
  Receive Date: 20120309
  Receipt Date: 20120302
  Transmission Date: 20120608
  Serious: Yes (Other)
  Sender: FDA-Public Use
  Company Number: FR-UCBSA-052620

PATIENT
  Age: 68 Year
  Sex: Female

DRUGS (5)
  1. KEPPRA [Suspect]
     Indication: EPILEPSY
     Dosage: UNSPECIFIED DOSE IN TWO INTAKES
     Route: 048
     Dates: start: 20120109, end: 20120205
  2. LOVENOX [Concomitant]
     Dosage: UNKNOWN DOSE
     Dates: start: 20120109
  3. MEDROL [Concomitant]
     Dosage: 150 MG DAILY
     Dates: start: 20120109
  4. PHENYTOIN SODIUM [Suspect]
     Indication: EPILEPSY
     Route: 048
     Dates: start: 20120109, end: 20120205
  5. TARCEVA [Suspect]
     Dosage: DAILY DOSE: 100 MG
     Route: 048
     Dates: start: 20100101

REACTIONS (2)
  - CYTOLYTIC HEPATITIS [None]
  - RASH MACULO-PAPULAR [None]
